FAERS Safety Report 9915985 (Version 1)
Quarter: 2014Q1

REPORT INFORMATION
  Report Type: Spontaneous
  Country: US (occurrence: None)
  Receive Date: 20140220
  Receipt Date: 20140220
  Transmission Date: 20141002
  Serious: Yes (Hospitalization)
  Sender: FDA-Public Use
  Company Number: None

PATIENT
  Age: 69 Year
  Sex: Male
  Weight: 93.8 kg

DRUGS (3)
  1. 5-FLUOROURACIL (5-FU) [Suspect]
  2. IRINOTECAN [Suspect]
  3. OXALIPLATIN (ELOXATIN) [Suspect]

REACTIONS (4)
  - Abdominal pain lower [None]
  - Nausea [None]
  - Dehydration [None]
  - Abdominal discomfort [None]
